FAERS Safety Report 5071694-5 (Version None)
Quarter: 2006Q3

REPORT INFORMATION
  Report Type: 
  Country: None (occurrence: None)
  Receive Date: 20060804
  Receipt Date: 20060605
  Transmission Date: 20061208
  Serious: Yes (Other)
  Sender: FDA-Public Use
  Company Number: PHEH2006US07255

PATIENT
  Age: 82 Year
  Sex: Female

DRUGS (10)
  1. PREVENGE [Concomitant]
     Dates: end: 20050101
  2. ELIGARD [Concomitant]
     Indication: PROSTATE CANCER
     Dates: start: 20040831
  3. DES [Concomitant]
     Dates: start: 20050613
  4. AMBIEN [Concomitant]
     Indication: INSOMNIA
     Dosage: 10MG UNK
     Dates: start: 20041210
  5. OXYCODONE HCL [Concomitant]
     Indication: PAIN
     Dates: start: 20041210, end: 20050601
  6. ALEVE (CAPLET) [Concomitant]
     Dosage: 2TABS UNK
     Dates: start: 20041210
  7. CELEBREX [Concomitant]
     Indication: ARTHRITIS
     Dosage: 200MG UNK
     Dates: start: 20041007, end: 20041202
  8. HYDROCHLOROTHIAZIDE [Concomitant]
     Indication: HYPERTENSION
     Dosage: 25MG UNK
     Dates: start: 20000101, end: 20050601
  9. ADALAT [Concomitant]
     Indication: HYPERTENSION
     Dosage: 90MG UNK
     Dates: start: 20000101
  10. ZOMETA [Suspect]
     Indication: METASTASES TO BONE
     Dosage: 4MG UNK
     Dates: start: 20031219, end: 20050106

REACTIONS (10)
  - BONE DEBRIDEMENT [None]
  - BONE DISORDER [None]
  - GINGIVAL INFECTION [None]
  - GINGIVAL SWELLING [None]
  - GINGIVITIS [None]
  - LYMPHADENOPATHY [None]
  - OSTEOMYELITIS [None]
  - OSTEONECROSIS [None]
  - PAIN [None]
  - SOFT TISSUE INFECTION [None]
